FAERS Safety Report 11114760 (Version 2)
Quarter: 2015Q2

REPORT INFORMATION
  Report Type: Spontaneous
  Country: JP (occurrence: None)
  Receive Date: 20150513
  Receipt Date: 20150527
  Transmission Date: 20150821
  Serious: Yes (Life-Threatening, Hospitalization, Other)
  Sender: FDA-Public Use
  Company Number: 2015-10720

PATIENT
  Age: 81 Year
  Sex: Male

DRUGS (8)
  1. EYLEA [Suspect]
     Active Substance: AFLIBERCEPT
     Indication: AGE-RELATED MACULAR DEGENERATION
     Route: 031
     Dates: start: 20140701, end: 20140701
  2. NORVASC [Concomitant]
     Active Substance: AMLODIPINE BESYLATE
  3. NEUROTROPIN (RABBIT VACCINIA EXTRACT) (RABBIT VACCINIA EXTRACT) [Concomitant]
  4. RENIVACE (ENALAPRIL MALEATE) [Concomitant]
  5. CELECOXIB. [Concomitant]
     Active Substance: CELECOXIB
  6. VEGAMOX (MOXIFLOXACIN HYDROCHLORIDE) [Concomitant]
  7. ARTIST (CARVEDILOL) [Concomitant]
  8. MUCOSTA (REBAMIPIDE) [Concomitant]

REACTIONS (5)
  - Retinal detachment [None]
  - Cerebral infarction [None]
  - Carotid artery stenosis [None]
  - Transient ischaemic attack [None]
  - Retinal haemorrhage [None]

NARRATIVE: CASE EVENT DATE: 20140902
